FAERS Safety Report 6140896-9 (Version None)
Quarter: 2009Q2

REPORT INFORMATION
  Report Type: 
  Country: None (occurrence: None)
  Receive Date: 20090402
  Receipt Date: 20080517
  Transmission Date: 20091009
  Serious: No
  Sender: FDA-Public Use
  Company Number: US-KINGPHARMUSA00001-K200800572

PATIENT
  Sex: Female

DRUGS (1)
  1. SKELAXIN [Suspect]
     Dates: start: 20080501

REACTIONS (3)
  - BLISTER [None]
  - CELLULITIS [None]
  - RASH [None]
